FAERS Safety Report 7571622-4 (Version None)
Quarter: 2011Q2

REPORT INFORMATION
  Report Type: 
  Country: None (occurrence: None)
  Receive Date: 20110613
  Receipt Date: 20110529
  Transmission Date: 20111010
  Serious: Yes (Hospitalization)
  Sender: FDA-Public Use
  Company Number: 2011027561

PATIENT
  Sex: Female

DRUGS (7)
  1. SYMBICORT [Concomitant]
  2. BLACK COHOSH (CIMICIFUGA RACEMOSA EXTRACT) [Concomitant]
  3. BUSPAR [Concomitant]
  4. GABAPENTIN [Concomitant]
  5. HYDROCODONE (HYDROCODONE) [Concomitant]
  6. CARIMUNE NF [Suspect]
     Indication: IMMUNODEFICIENCY COMMON VARIABLE
     Dosage: (36 G 1X/MONTH INTRAVENOUS (NOT OTHERWISE SPECIFIED))
     Route: 042
  7. OXYCONTIN [Concomitant]

REACTIONS (9)
  - NAUSEA [None]
  - FATIGUE [None]
  - HYPOKALAEMIA [None]
  - BLOOD PRESSURE INCREASED [None]
  - BODY TEMPERATURE DECREASED [None]
  - ASTHENIA [None]
  - LEUKOCYTOSIS [None]
  - HYPONATRAEMIA [None]
  - ANAPHYLACTIC REACTION [None]
